FAERS Safety Report 7678602-9 (Version None)
Quarter: 2011Q3

REPORT INFORMATION
  Report Type: 
  Country: None (occurrence: None)
  Receive Date: 20110811
  Receipt Date: 20110727
  Transmission Date: 20111222
  Serious: Yes (Other)
  Sender: FDA-Public Use
  Company Number: US-BAYER-2011-066556

PATIENT
  Sex: Female

DRUGS (2)
  1. ALEVE (CAPLET) [Suspect]
     Indication: ANALGESIC THERAPY
     Dosage: UNK UNK,
     Route: 048
     Dates: start: 20110101, end: 20110101
  2. ACETYLSALICYLIC ACID({=100 MG)(CHEWABLE TABLET) [Interacting]

REACTIONS (1)
  - RECTAL HAEMORRHAGE [None]
